FAERS Safety Report 8809488 (Version 2)
Quarter: 2012Q4

REPORT INFORMATION
  Report Type: 
  Country: US (occurrence: US)
  Receive Date: 20120926
  Receipt Date: 20121002
  Transmission Date: 20130627
  Serious: No
  Sender: FDA-Public Use
  Company Number: US-B.I. PHARMACEUTICALS,INC./RIDGEFIELD-2012-BP-23329BP

PATIENT
  Age: 54 Year
  Sex: Female

DRUGS (11)
  1. SPIRIVA [Suspect]
     Indication: TOBACCO USER
     Dosage: 18 mcg
     Route: 055
     Dates: start: 201202
  2. SPIRIVA [Suspect]
     Dosage: 18 mcg
     Route: 048
     Dates: start: 20120924, end: 20120924
  3. ZANTAC 150 (RANITIDINE HYDROCHLORIDE) [Suspect]
     Indication: DYSPEPSIA
     Dosage: 300 mg
     Route: 048
  4. TOVIAZ [Concomitant]
     Indication: URINARY INCONTINENCE
     Dosage: 4 mg
     Route: 048
  5. HYDROCODONE [Concomitant]
     Indication: BACK PAIN
     Route: 048
     Dates: start: 2007
  6. EVISTA [Concomitant]
     Indication: BONE DISORDER
     Dosage: 60 mg
     Route: 048
  7. LOVASTATIN [Concomitant]
     Indication: BLOOD CHOLESTEROL INCREASED
     Dosage: 40 mg
     Route: 048
     Dates: start: 201205
  8. ESCITALOPRAM [Concomitant]
     Indication: DEPRESSION
     Dosage: 20 mg
     Route: 048
     Dates: start: 2008
  9. LASIX [Concomitant]
     Indication: OEDEMA
     Dosage: 20 mg
     Route: 048
     Dates: start: 201202
  10. POTASSIUM [Concomitant]
     Indication: SUPPLEMENTATION THERAPY
     Route: 048
     Dates: start: 201202
  11. GABAPENTIN [Concomitant]
     Indication: FIBROMYALGIA
     Dosage: 900 mg
     Route: 048
     Dates: start: 2008

REACTIONS (8)
  - Incorrect route of drug administration [Recovered/Resolved]
  - Oropharyngeal pain [Recovered/Resolved]
  - Nasopharyngitis [Not Recovered/Not Resolved]
  - Rhinorrhoea [Not Recovered/Not Resolved]
  - Nasal congestion [Not Recovered/Not Resolved]
  - Increased viscosity of nasal secretion [Not Recovered/Not Resolved]
  - Dyspnoea [Not Recovered/Not Resolved]
  - Incorrect route of drug administration [Recovered/Resolved]
